FAERS Safety Report 20895549 (Version 1)
Quarter: 2022Q2

REPORT INFORMATION
  Report Type: Spontaneous
  Country: US (occurrence: US)
  Receive Date: 20220531
  Receipt Date: 20220531
  Transmission Date: 20220721
  Serious: Yes (Other)
  Sender: FDA-Public Use
  Company Number: US-MYLANLABS-2022M1041084

PATIENT
  Age: 4 Month
  Sex: Female

DRUGS (21)
  1. CYTARABINE [Suspect]
     Active Substance: CYTARABINE
     Indication: T-cell type acute leukaemia
     Dosage: INDUCTION THERAPY AS PER CHILDREN^S ONCOLOGY GROUP PROTOCOL AALL0631?
     Route: 065
     Dates: start: 202010
  2. CYTARABINE [Suspect]
     Active Substance: CYTARABINE
     Dosage: INDUCTION INTENSIFICATION THERAPY AS PER CHILDREN^S ONCOLOGY GROUP PROTOCOL AALL0631...
     Route: 065
     Dates: start: 202011
  3. DEXAMETHASONE [Suspect]
     Active Substance: DEXAMETHASONE
     Indication: T-cell type acute leukaemia
     Dosage: INDUCTION THERAPY AS PER CHILDREN...^S ONCOLOGY GROUP PROTOCOL AALL0631
     Route: 065
     Dates: start: 202010
  4. DEXAMETHASONE [Suspect]
     Active Substance: DEXAMETHASONE
     Dosage: INDUCTION INTENSIFICATION THERAPY AS PER CHILDREN^S ONCOLOGY GROUP PROTOCOL AALL0631...
     Route: 065
     Dates: start: 202011
  5. CYTARABINE [Suspect]
     Active Substance: CYTARABINE
     Indication: T-cell type acute leukaemia
     Dosage: INDUCTION THERAPY AS PER CHILDREN^S ONCOLOGY GROUP PROTOCOL AALL0631....
     Route: 037
     Dates: start: 202010
  6. CYTARABINE [Suspect]
     Active Substance: CYTARABINE
     Dosage: INDUCTION THERAPY AS PER CHILDREN^S ONCOLOGY GROUP PROTOCOL AALL0631...
     Route: 037
     Dates: start: 202011
  7. HYDROCORTISONE [Suspect]
     Active Substance: HYDROCORTISONE
     Indication: T-cell type acute leukaemia
     Dosage: INDUCTION THERAPY AS PER CHILDREN^S ONCOLOGY GROUP PROTOCOL AALL0631....
     Route: 037
     Dates: start: 202010
  8. HYDROCORTISONE [Suspect]
     Active Substance: HYDROCORTISONE
     Dosage: INDUCTION THERAPY AS PER CHILDREN^S ONCOLOGY GROUP PROTOCOL AALL0631....
     Route: 037
     Dates: start: 202011
  9. METHOTREXATE [Suspect]
     Active Substance: METHOTREXATE
     Indication: T-cell type acute leukaemia
     Dosage: INDUCTION THERAPY AS PER CHILDREN^S ONCOLOGY GROUP PROTOCOL AALL0631...
     Route: 037
     Dates: start: 202010
  10. METHOTREXATE [Suspect]
     Active Substance: METHOTREXATE
     Dosage: INDUCTION INTENSIFICATION THERAPY AS PER CHILDREN^S ONCOLOGY GROUP PROTOCOL AALL0631.....
     Route: 037
     Dates: start: 202011
  11. METHOTREXATE [Suspect]
     Active Substance: METHOTREXATE
     Indication: T-cell type acute leukaemia
     Dosage: HIGH DOSE
     Route: 065
     Dates: start: 202011
  12. ETOPOSIDE [Suspect]
     Active Substance: ETOPOSIDE
     Indication: T-cell type acute leukaemia
     Dosage: UNK
     Route: 065
     Dates: start: 202011
  13. DAUNORUBICIN [Suspect]
     Active Substance: DAUNORUBICIN
     Indication: T-cell type acute leukaemia
     Dosage: INDUCTION THERAPY AS PER CHILDREN^S ONCOLOGY GROUP PROTOCOL AALL0631.....
     Route: 065
     Dates: start: 202010
  14. DAUNORUBICIN [Suspect]
     Active Substance: DAUNORUBICIN
     Dosage: INDUCTION INTENSIFICATION THERAPY AS PER CHILDREN^S ONCOLOGY GROUP PROTOCOL AALL0631....
     Route: 065
     Dates: start: 202011
  15. PEGASPARGASE [Suspect]
     Active Substance: PEGASPARGASE
     Indication: T-cell type acute leukaemia
     Dosage: INDUCTION THERAPY AS PER CHILDREN^S ONCOLOGY GROUP PROTOCOL AALL0631...
     Route: 065
     Dates: start: 202010
  16. PEGASPARGASE [Suspect]
     Active Substance: PEGASPARGASE
     Dosage: INDUCTION INTENSIFICATION THERAPY AS PER CHILDREN^S ONCOLOGY GROUP PROTOCOL AALL0631....
     Route: 065
     Dates: start: 202011
  17. PREDNISOLONE [Suspect]
     Active Substance: PREDNISOLONE
     Indication: T-cell type acute leukaemia
     Dosage: INDUCTION THERAPY AS PER CHILDREN^S ONCOLOGY GROUP PROTOCOL AALL0631.....
     Route: 065
     Dates: start: 202010
  18. PREDNISOLONE [Suspect]
     Active Substance: PREDNISOLONE
     Dosage: INDUCTION INTENSIFICATION THERAPY AS PER CHILDREN^S ONCOLOGY GROUP PROTOCOL AALL0631...
     Route: 065
     Dates: start: 202011
  19. VINCRISTINE [Suspect]
     Active Substance: VINCRISTINE
     Indication: T-cell type acute leukaemia
     Dosage: INDUCTION THERAPY AS PER CHILDREN^S ONCOLOGY GROUP PROTOCOL AALL0631...
     Route: 065
     Dates: start: 202010
  20. VINCRISTINE [Suspect]
     Active Substance: VINCRISTINE
     Dosage: INDUCTION INTENSIFICATION THERAPY AS PER CHILDREN^S ONCOLOGY GROUP PROTOCOL AALL0631...
     Route: 065
     Dates: start: 202011
  21. CYCLOPHOSPHAMIDE [Suspect]
     Active Substance: CYCLOPHOSPHAMIDE
     Indication: T-cell type acute leukaemia
     Dosage: UNK
     Route: 065
     Dates: start: 202011

REACTIONS (5)
  - Bacteraemia [Unknown]
  - Neutropenia [Unknown]
  - Mucosal inflammation [Unknown]
  - Pyrexia [Unknown]
  - Off label use [Unknown]

NARRATIVE: CASE EVENT DATE: 20200101
